FAERS Safety Report 5864420-0 (Version None)
Quarter: 2008Q3

REPORT INFORMATION
  Report Type: 
  Country: None (occurrence: None)
  Receive Date: 20080829
  Receipt Date: 20080702
  Transmission Date: 20090109
  Serious: No
  Sender: FDA-Public Use
  Company Number: US-ABBOTT-08P-163-0460571-00

PATIENT
  Sex: Female
  Weight: 113.5 kg

DRUGS (6)
  1. SIMCOR [Suspect]
     Indication: DYSLIPIDAEMIA
     Dosage: 500/20 MG
     Route: 048
     Dates: start: 20080515, end: 20080530
  2. IRBESARTAN AND HYDROCHLOROTHIAZIDE [Concomitant]
     Indication: HYPERTENSION
     Dosage: 150/12.5 MG
     Route: 048
  3. CLONAZEPAM [Concomitant]
     Indication: ANXIETY
     Route: 048
  4. ARIPIPRAZOLE [Concomitant]
     Indication: HALLUCINATION
     Dosage: AT NIGHT
     Route: 048
  5. VALPROATE SODIUM [Concomitant]
     Indication: BIPOLAR DISORDER
     Dosage: EVERY MORNING
     Route: 048
  6. CITALOPRAM HYDROBROMIDE [Concomitant]
     Indication: DEPRESSION
     Route: 048

REACTIONS (5)
  - DYSPHORIA [None]
  - HALLUCINATION, AUDITORY [None]
  - MANIA [None]
  - RASH MACULAR [None]
  - WEIGHT DECREASED [None]
